FAERS Safety Report 8279099-0 (Version None)
Quarter: 2012Q2

REPORT INFORMATION
  Report Type: 
  Country: None (occurrence: None)
  Receive Date: 20120412
  Receipt Date: 20110801
  Transmission Date: 20120825
  Serious: No
  Sender: FDA-Public Use
  Company Number: US-ASTRAZENECA-2011SE02040

PATIENT
  Age: 75 Year
  Sex: Female

DRUGS (2)
  1. NEXIUM [Suspect]
     Route: 048
  2. PREVACID [Concomitant]

REACTIONS (8)
  - BURNING SENSATION [None]
  - MALAISE [None]
  - DYSPEPSIA [None]
  - NAUSEA [None]
  - ABDOMINAL DISCOMFORT [None]
  - VIRAL INFECTION [None]
  - SINUS DISORDER [None]
  - DRUG DOSE OMISSION [None]
